FAERS Safety Report 15656094 (Version 1)
Quarter: 2018Q4

REPORT INFORMATION
  Report Type: Spontaneous
  Country: FR (occurrence: FR)
  Receive Date: 20181126
  Receipt Date: 20181126
  Transmission Date: 20190205
  Serious: Yes (Other)
  Sender: FDA-Public Use
  Company Number: FR-SA-2018SA318299

PATIENT
  Age: 62 Year
  Sex: Female

DRUGS (3)
  1. LEVOTHYROX [Concomitant]
     Active Substance: LEVOTHYROXINE
     Dosage: UNK UNK, UNK
     Route: 065
  2. STILNOX [Suspect]
     Active Substance: ZOLPIDEM TARTRATE
     Dosage: 1 TABLET IN THE EVENING
     Route: 065
  3. SERESTA [Concomitant]
     Active Substance: OXAZEPAM
     Dosage: 1 DF, HS
     Route: 065

REACTIONS (1)
  - Glaucoma [Not Recovered/Not Resolved]
